FAERS Safety Report 9538352 (Version 1)
Quarter: 2013Q3

REPORT INFORMATION
  Report Type: Spontaneous
  Country: US (occurrence: US)
  Receive Date: 20130920
  Receipt Date: 20130920
  Transmission Date: 20140515
  Serious: Yes (Hospitalization)
  Sender: FDA-Public Use
  Company Number: US-BAYER-2013-113788

PATIENT
  Age: 44 Year
  Sex: Female
  Weight: 99.79 kg

DRUGS (5)
  1. YAZ [Suspect]
  2. MOTRIN [Concomitant]
  3. XANAX [Concomitant]
     Indication: ANXIETY
  4. ALBUTEROL [Concomitant]
  5. PREDNISONE [Concomitant]

REACTIONS (1)
  - Pulmonary embolism [None]
